FAERS Safety Report 5879859-7 (Version None)
Quarter: 2008Q3

REPORT INFORMATION
  Report Type: 
  Country: None (occurrence: None)
  Receive Date: 20080912
  Receipt Date: 20080901
  Transmission Date: 20090109
  Serious: Yes (Other)
  Sender: FDA-Public Use
  Company Number: AU-ROCHE-583840

PATIENT
  Sex: Male

DRUGS (2)
  1. ROACCUTANE [Suspect]
     Indication: ACNE
     Route: 065
     Dates: start: 20070531, end: 20070714
  2. ROACCUTANE [Suspect]
     Route: 065
     Dates: start: 20080101

REACTIONS (3)
  - ACNE [None]
  - ALANINE AMINOTRANSFERASE INCREASED [None]
  - DEAFNESS UNILATERAL [None]
